FAERS Safety Report 6723311-3 (Version None)
Quarter: 2010Q2

REPORT INFORMATION
  Report Type: 
  Country: None (occurrence: None)
  Receive Date: 20100511
  Receipt Date: 20100427
  Transmission Date: 20101027
  Serious: Yes (Life-Threatening, Hospitalization)
  Sender: FDA-Public Use
  Company Number: ESP10000051

PATIENT
  Age: 77 Year
  Sex: Female
  Weight: 64.5 kg

DRUGS (7)
  1. ACTONEL [Suspect]
     Indication: OSTEOPOROSIS
     Dosage: 75 MG, 2 CD/MONTH, ORAL
     Route: 048
     Dates: start: 20090401, end: 20100201
  2. ACTONEL [Suspect]
     Indication: OSTEOPOROSIS
     Dosage: 5 MG, 1 /DAY, ORAL
     Route: 048
     Dates: start: 20030201, end: 20070701
  3. OSVICAL D (CALCIUM PIDOLATE, COLECALCIFEROL) [Concomitant]
  4. CO VIALS (HYDROCHLOROTHIAZIDE, VALSARTAN) [Concomitant]
  5. LANSOPRAZOLE [Concomitant]
  6. ARICEPT /01318902/ (DONEPEZIL HYDROCHLORIDE) [Concomitant]
  7. ALTISBEN (SERTRALINE HYDROCHLORIDE) [Concomitant]

REACTIONS (2)
  - DRUG ADMINISTRATION ERROR [None]
  - GASTRIC CANCER [None]
